FAERS Safety Report 8975155 (Version 1)
Quarter: 2012Q4

REPORT INFORMATION
  Report Type: 
  Country: US (occurrence: US)
  Receive Date: 20121219
  Receipt Date: 20121219
  Transmission Date: 20130627
  Serious: No
  Sender: FDA-Public Use
  Company Number: US-AMGEN-USASP2012073722

PATIENT
  Age: 73 Year
  Sex: Female
  Weight: 59.86 kg

DRUGS (2)
  1. PROLIA [Suspect]
     Indication: OSTEOPOROSIS POSTMENOPAUSAL
     Dosage: 60 mg, q6mo
     Route: 058
     Dates: start: 20111213, end: 20120613
  2. PROLIA [Suspect]
     Dosage: 60 mg, one time dose
     Route: 058
     Dates: start: 20120613, end: 20120614

REACTIONS (1)
  - Arthritis [Unknown]
